FAERS Safety Report 13399001 (Version 1)
Quarter: 2017Q2

REPORT INFORMATION
  Report Type: Other
  Country: JP (occurrence: JP)
  Receive Date: 20170404
  Receipt Date: 20170404
  Transmission Date: 20170830
  Serious: No
  Sender: FDA-Public Use
  Company Number: JP-LUPIN PHARMACEUTICALS INC.-2016-03063

PATIENT
  Age: 78 Year
  Sex: Female

DRUGS (14)
  1. MOHRUS TAPE [Concomitant]
     Active Substance: KETOPROFEN
     Indication: PRODUCT USED FOR UNKNOWN INDICATION
     Dosage: 20 MG
     Route: 065
  2. SERTRALINE 25MG OD TABLET [Suspect]
     Active Substance: SERTRALINE HYDROCHLORIDE
     Indication: PALPITATIONS
     Dosage: .5 DF,QD,
     Route: 048
     Dates: start: 20160506, end: 20160528
  3. MICARDIS [Concomitant]
     Active Substance: TELMISARTAN
     Indication: PRODUCT USED FOR UNKNOWN INDICATION
     Dosage: 40 MG
     Route: 065
  4. BROTIZOLAM [Concomitant]
     Active Substance: BROTIZOLAM
     Indication: PRODUCT USED FOR UNKNOWN INDICATION
     Dosage: 0.25 MG
     Route: 065
  5. ETIZOLAM [Concomitant]
     Active Substance: ETIZOLAM
     Indication: PRODUCT USED FOR UNKNOWN INDICATION
     Dosage: 0.5 MG
     Route: 065
  6. MECOBALAMIN LOCK [Concomitant]
     Indication: PRODUCT USED FOR UNKNOWN INDICATION
     Dosage: 500 MICROG
     Route: 065
  7. LOCHOL [Concomitant]
     Active Substance: FLUVASTATIN SODIUM
     Indication: PRODUCT USED FOR UNKNOWN INDICATION
     Dosage: 20 MG
     Route: 065
  8. AMLODIN [Concomitant]
     Active Substance: AMLODIPINE BESYLATE
     Indication: PRODUCT USED FOR UNKNOWN INDICATION
     Dosage: 5 MG,QD,
     Route: 065
  9. GASMOTIN [Concomitant]
     Active Substance: MOSAPRIDE CITRATE
     Indication: PRODUCT USED FOR UNKNOWN INDICATION
     Dosage: 5 MG
     Route: 065
  10. GASTER [Concomitant]
     Active Substance: FAMOTIDINE
     Indication: PRODUCT USED FOR UNKNOWN INDICATION
     Dosage: 10 MG
     Route: 065
  11. PLETAAL [Concomitant]
     Active Substance: CILOSTAZOL
     Indication: PRODUCT USED FOR UNKNOWN INDICATION
     Dosage: 50 MG
     Route: 065
  12. KALLIDINOGENASE [Concomitant]
     Active Substance: KALLIDINOGENASE
     Indication: PRODUCT USED FOR UNKNOWN INDICATION
     Dosage: 50 UNITS
     Route: 065
  13. SERTRALINE 25MG OD TABLET [Suspect]
     Active Substance: SERTRALINE HYDROCHLORIDE
     Indication: DISCOMFORT
  14. ETHYL LOFLAZEPATE [Concomitant]
     Active Substance: ETHYL LOFLAZEPATE
     Indication: PRODUCT USED FOR UNKNOWN INDICATION
     Dosage: 1 MG
     Route: 065

REACTIONS (1)
  - Pollakiuria [Recovered/Resolved]

NARRATIVE: CASE EVENT DATE: 20160507
